FAERS Safety Report 10365321 (Version 1)
Quarter: 2014Q3

REPORT INFORMATION
  Report Type: Spontaneous
  Country: US (occurrence: None)
  Receive Date: 20140804
  Receipt Date: 20140804
  Transmission Date: 20150326
  Serious: No
  Sender: FDA-Public Use
  Company Number: None

PATIENT
  Age: 37 Year
  Sex: Male
  Weight: 105.24 kg

DRUGS (1)
  1. CREST PRO-HEALTH RINSE [Suspect]
     Active Substance: CETYLPYRIDINIUM CHLORIDE
     Indication: BREATH ODOUR
     Dates: start: 20140731, end: 20140801

REACTIONS (1)
  - Ageusia [None]

NARRATIVE: CASE EVENT DATE: 20140802
